FAERS Safety Report 5576490-8 (Version None)
Quarter: 2007Q4

REPORT INFORMATION
  Report Type: 
  Country: None (occurrence: None)
  Receive Date: 20071228
  Receipt Date: 20071219
  Transmission Date: 20080405
  Serious: Yes (Death, Hospitalization)
  Sender: FDA-Public Use
  Company Number: A0655319A

PATIENT
  Age: 14 Year
  Sex: Male
  Weight: 49.5 kg

DRUGS (4)
  1. ADVAIR DISKUS 100/50 [Suspect]
     Indication: ASTHMA
     Dosage: 1PUFF TWICE PER DAY
     Route: 055
     Dates: end: 20050603
  2. ALBUTEROL [Concomitant]
  3. COMBIVENT [Concomitant]
  4. PANCOF [Concomitant]
     Dates: start: 20050126

REACTIONS (11)
  - ASPIRATION [None]
  - ASTHMA [None]
  - CARDIO-RESPIRATORY ARREST [None]
  - CHEST DISCOMFORT [None]
  - COUGH [None]
  - EXERCISE TOLERANCE DECREASED [None]
  - INJURY [None]
  - OBSTRUCTIVE AIRWAYS DISORDER [None]
  - STATUS ASTHMATICUS [None]
  - SYNCOPE [None]
  - WHEEZING [None]
